FAERS Safety Report 5268118-1 (Version None)
Quarter: 2007Q1

REPORT INFORMATION
  Report Type: 
  Country: None (occurrence: None)
  Receive Date: 20070314
  Receipt Date: 20070314
  Transmission Date: 20070707
  Serious: Yes (Hospitalization)
  Sender: FDA-Public Use
  Company Number: None

PATIENT
  Sex: Female
  Weight: 123.9 kg

DRUGS (4)
  1. FLUOROURACIL [Suspect]
     Dosage: 5450 MG
     Dates: end: 20070223
  2. LEUCOVORIN CALCIUM [Suspect]
     Dosage: 912 MG
     Dates: end: 20070223
  3. ELOXATIN [Suspect]
     Dosage: 193 MG
     Dates: end: 20070212
  4. LASIX [Concomitant]

REACTIONS (3)
  - DEEP VEIN THROMBOSIS [None]
  - OEDEMA PERIPHERAL [None]
  - PULMONARY EMBOLISM [None]
